FAERS Safety Report 23451144 (Version 2)
Quarter: 2024Q1

REPORT INFORMATION
  Report Type: Spontaneous
  Country: IN (occurrence: IN)
  Receive Date: 20240129
  Receipt Date: 20240131
  Transmission Date: 20240410
  Serious: No
  Sender: FDA-Public Use
  Company Number: IN-PFIZER INC-202101312242

PATIENT
  Age: 71 Year
  Sex: Female

DRUGS (12)
  1. PALBOCICLIB [Suspect]
     Active Substance: PALBOCICLIB
     Indication: Breast cancer metastatic
     Dosage: 125 MG, 1X/DAY
     Route: 048
     Dates: start: 20210922
  2. PALBOCICLIB [Suspect]
     Active Substance: PALBOCICLIB
     Dosage: 125 MG, 1X/DAY 5 DAYS A WEEK AND 2 DAYS GAP
     Route: 048
     Dates: start: 20211224
  3. PALBOCICLIB [Suspect]
     Active Substance: PALBOCICLIB
     Dosage: 100 MG, ONCE DAILY, D1-D21
     Route: 048
     Dates: start: 20220517
  4. PALBOCICLIB [Suspect]
     Active Substance: PALBOCICLIB
     Dosage: 75 MG, 1X/DAY (D1-D21)
     Route: 048
  5. ZOLEDRONIC ACID [Concomitant]
     Active Substance: ZOLEDRONIC ACID
     Dosage: MONTHLY FOR 6 IN MORNING AND THEN 3 MONTHLY
  6. CREMAFFIN PLUS [Concomitant]
     Dosage: AT BEDTIME
  7. GEMCAL [CALCITRIOL;CALCIUM CARBONATE;ZINC] [Concomitant]
     Dosage: UNK, 1X/DAY
  8. DOMPERIDONE\PANTOPRAZOLE SODIUM [Concomitant]
     Active Substance: DOMPERIDONE\PANTOPRAZOLE SODIUM
     Dosage: UNK, 1X/DAY
  9. LETROZOLE [Concomitant]
     Active Substance: LETROZOLE
     Indication: Breast cancer metastatic
     Dosage: 2.5 MG, 1X/DAY
  10. MAGVIT [MAGNESIUM LACTATE;PYRIDOXINE HYDROCHLORIDE] [Concomitant]
     Dosage: 5 ML, BD
  11. GRANULOCYTE COLONY-STIMULATING FACTOR NOS [Concomitant]
     Active Substance: GRANULOCYTE COLONY-STIMULATING FACTOR NOS
     Dosage: 300 MG, 20 DAYS
     Route: 058
  12. LEVOFLOXACIN [Concomitant]
     Active Substance: LEVOFLOXACIN
     Dosage: 500 MG, 1X/DAY (X 5DAY)

REACTIONS (13)
  - Neoplasm progression [Unknown]
  - Blood pressure increased [Not Recovered/Not Resolved]
  - Skin wrinkling [Unknown]
  - Heart rate increased [Recovered/Resolved]
  - White blood cell count decreased [Not Recovered/Not Resolved]
  - Neutrophil count decreased [Unknown]
  - Diarrhoea [Unknown]
  - Pyrexia [Unknown]
  - Oxygen saturation decreased [Recovered/Resolved]
  - Haemoglobin decreased [Unknown]
  - Carbohydrate antigen 15-3 increased [Unknown]
  - Off label use [Unknown]
  - Product use issue [Unknown]

NARRATIVE: CASE EVENT DATE: 20210930
